FAERS Safety Report 9270635 (Version 1)
Quarter: 2013Q2

REPORT INFORMATION
  Report Type: Other
  Country: DE (occurrence: DE)
  Receive Date: 20130503
  Receipt Date: 20130503
  Transmission Date: 20140414
  Serious: Yes (Hospitalization)
  Sender: FDA-Public Use
  Company Number: DE-WATSON-2013-07437

PATIENT
  Age: 64 Year
  Sex: Female

DRUGS (14)
  1. CITALOPRAM HYDROBROMIDE (WATSON LABORATORIES) [Suspect]
     Indication: PRODUCT USED FOR UNKNOWN INDICATION
     Dosage: 40 MG, DAILY
     Route: 048
     Dates: start: 20120206, end: 20130110
  2. SEROQUEL XR [Suspect]
     Indication: PRODUCT USED FOR UNKNOWN INDICATION
     Dosage: 400 MG, DAILY
     Route: 048
     Dates: start: 20130112
  3. SEROQUEL XR [Suspect]
     Dosage: 600 MG, DAILY
     Route: 048
     Dates: start: 20130111
  4. SEROQUEL XR [Suspect]
     Dosage: 800 MG, DAILY
     Route: 048
     Dates: start: 20130109, end: 20130110
  5. SEROQUEL XR [Suspect]
     Dosage: 1200 MG, DAILY
     Route: 048
     Dates: start: 20120730, end: 20130108
  6. SEROQUEL XR [Suspect]
     Dosage: 800 MG, DAILY
     Route: 048
     Dates: start: 20120720, end: 20120729
  7. SEROQUEL XR [Suspect]
     Dosage: 600 MG, DAILY
     Route: 048
     Dates: start: 20120719
  8. SEROQUEL XR [Suspect]
     Dosage: 400 MG, DAILY
     Route: 048
     Dates: start: 20120717, end: 20120718
  9. SEROQUEL XR [Suspect]
     Dosage: 300 MG, DAILY
     Route: 048
     Dates: start: 20120716
  10. SEROQUEL XR [Suspect]
     Dosage: 100 MG, DAILY
     Route: 048
     Dates: start: 20120714, end: 20120715
  11. LAMOTRIGIN [Concomitant]
     Indication: PRODUCT USED FOR UNKNOWN INDICATION
     Dosage: 300MG, UNK
     Route: 048
     Dates: start: 20120713
  12. ELONTRIL [Concomitant]
     Indication: PRODUCT USED FOR UNKNOWN INDICATION
     Dosage: 150MG, UNK
     Route: 048
     Dates: start: 20120713, end: 20130121
  13. DOMINAL                            /00002701/ [Concomitant]
     Indication: PRODUCT USED FOR UNKNOWN INDICATION
     Dosage: 80MG, UNK
     Route: 048
     Dates: start: 20120101, end: 20130121
  14. PANTOZOL                           /01263204/ [Concomitant]
     Indication: PRODUCT USED FOR UNKNOWN INDICATION
     Dosage: 20MG,UNK
     Route: 048
     Dates: start: 20120101

REACTIONS (1)
  - Restless legs syndrome [Recovered/Resolved]
